FAERS Safety Report 5046202-5 (Version None)
Quarter: 2006Q2

REPORT INFORMATION
  Report Type: 
  Country: None (occurrence: None)
  Receive Date: 20060629
  Receipt Date: 20060621
  Transmission Date: 20061013
  Serious: Yes (Hospitalization, Other)
  Sender: FDA-Public Use
  Company Number: 2006063298

PATIENT
  Age: 47 Year
  Sex: Male

DRUGS (3)
  1. BEXTRA [Suspect]
     Indication: ILL-DEFINED DISORDER
     Dates: start: 20030801
  2. CLONIDINE [Concomitant]
  3. VIOXX [Concomitant]

REACTIONS (7)
  - ABDOMINAL PAIN UPPER [None]
  - BLOOD CHOLESTEROL INCREASED [None]
  - BLOOD PRESSURE INCREASED [None]
  - PANCREATITIS [None]
  - SPINAL DISORDER [None]
  - SURGICAL PROCEDURE REPEATED [None]
  - THROMBOSIS [None]
